FAERS Safety Report 9161396 (Version 1)
Quarter: 2013Q1

REPORT INFORMATION
  Report Type: Spontaneous
  Country: US (occurrence: US)
  Receive Date: 20130313
  Receipt Date: 20130313
  Transmission Date: 20140127
  Serious: Yes (Other)
  Sender: FDA-Public Use
  Company Number: US-009507513-1303USA004331

PATIENT
  Age: 59 Year
  Sex: Female

DRUGS (2)
  1. SINGULAIR [Suspect]
     Indication: COUGH
     Route: 048
  2. PROVENTIL [Concomitant]

REACTIONS (1)
  - Allergic granulomatous angiitis [Unknown]
